FAERS Safety Report 25526246 (Version 1)
Quarter: 2025Q3

REPORT INFORMATION
  Report Type: Report from Study
  Country: CA (occurrence: CA)
  Receive Date: 20250707
  Receipt Date: 20250707
  Transmission Date: 20251021
  Serious: Yes (Other)
  Sender: PFIZER
  Company Number: CA-PFIZER INC-202500133675

PATIENT
  Age: 41 Year
  Sex: Female

DRUGS (11)
  1. ADALIMUMAB [Suspect]
     Active Substance: ADALIMUMAB
     Indication: Rheumatoid arthritis
     Route: 058
  2. FLOVENT [Concomitant]
     Active Substance: FLUTICASONE PROPIONATE
  3. FOLIC ACID [Concomitant]
     Active Substance: FOLIC ACID
  4. IBUPROFEN [Concomitant]
     Active Substance: IBUPROFEN
  5. IRON [Concomitant]
     Active Substance: IRON
  6. PREDNISONE [Concomitant]
     Active Substance: PREDNISONE
  7. RABEPRAZOLE [Concomitant]
     Active Substance: RABEPRAZOLE
  8. SYNTHROID [Concomitant]
     Active Substance: LEVOTHYROXINE SODIUM
  9. TRANEXAMIC ACID [Concomitant]
     Active Substance: TRANEXAMIC ACID
  10. VENTOLIN [Concomitant]
     Active Substance: ALBUTEROL SULFATE
  11. METHOTREXATE [Concomitant]
     Active Substance: METHOTREXATE
     Route: 048

REACTIONS (7)
  - Pneumonia [Unknown]
  - Bronchitis [Unknown]
  - Feeling of body temperature change [Unknown]
  - Hypersensitivity [Unknown]
  - Illness [Unknown]
  - Influenza [Unknown]
  - Pyrexia [Unknown]
